FAERS Safety Report 9131138 (Version 1)
Quarter: 2013Q1

REPORT INFORMATION
  Report Type: Spontaneous
  Country: US (occurrence: US)
  Receive Date: 20130301
  Receipt Date: 20130301
  Transmission Date: 20140127
  Serious: Yes (Other)
  Sender: FDA-Public Use
  Company Number: US-SANOFI-AVENTIS-2013SA019775

PATIENT
  Age: 62 Year
  Sex: Female

DRUGS (1)
  1. PLAQUENIL [Suspect]

REACTIONS (8)
  - Retinal detachment [Unknown]
  - Intervertebral disc protrusion [Unknown]
  - Surgery [Unknown]
  - Maculopathy [Unknown]
  - Retinal disorder [Unknown]
  - Visual impairment [Unknown]
  - Salivary gland disorder [Unknown]
  - Ill-defined disorder [Unknown]
